FAERS Safety Report 8168887-7 (Version None)
Quarter: 2012Q1

REPORT INFORMATION
  Report Type: 
  Country: None (occurrence: None)
  Receive Date: 20120227
  Receipt Date: 20120220
  Transmission Date: 20120608
  Serious: Yes (Other)
  Sender: FDA-Public Use
  Company Number: US-ABBOTT-12P-163-0906586-00

PATIENT
  Age: 29 Year
  Sex: Female

DRUGS (4)
  1. HUMIRA [Suspect]
     Indication: CROHN'S DISEASE
     Dates: start: 20100301
  2. COLAZOL [Concomitant]
     Indication: CROHN'S DISEASE
  3. MERCAPTOPURINE [Suspect]
     Indication: PRODUCT USED FOR UNKNOWN INDICATION
  4. ADDERALL 5 [Concomitant]
     Indication: ATTENTION DEFICIT/HYPERACTIVITY DISORDER
     Dosage: DAILY

REACTIONS (5)
  - RASH [None]
  - CROHN'S DISEASE [None]
  - INTESTINAL STENOSIS [None]
  - INTESTINAL OBSTRUCTION [None]
  - ANAL FISTULA [None]
